FAERS Safety Report 19071432 (Version 1)
Quarter: 2021Q1

REPORT INFORMATION
  Report Type: Spontaneous
  Country: US (occurrence: US)
  Receive Date: 20210330
  Receipt Date: 20210330
  Transmission Date: 20210420
  Serious: No
  Sender: FDA-Public Use
  Company Number: US-SA-2021SA104618

PATIENT
  Age: 26 Year
  Sex: Female

DRUGS (1)
  1. DUPIXENT [Suspect]
     Active Substance: DUPILUMAB
     Indication: ASTHMA
     Route: 058
     Dates: start: 20210209

REACTIONS (5)
  - Injection site rash [Unknown]
  - Product use issue [Unknown]
  - Injection site exfoliation [Unknown]
  - Injection site pruritus [Unknown]
  - Injection site scar [Unknown]

NARRATIVE: CASE EVENT DATE: 20210209
